FAERS Safety Report 9691033 (Version 3)
Quarter: 2014Q3

REPORT INFORMATION
  Report Type: Spontaneous
  Country: US (occurrence: US)
  Receive Date: 20131115
  Receipt Date: 20140717
  Transmission Date: 20150326
  Serious: Yes (Death, Hospitalization, Other)
  Sender: FDA-Public Use
  Company Number: US-009507513-1311USA005833

PATIENT
  Sex: Female
  Weight: 85.99 kg

DRUGS (2)
  1. JANUVIA [Suspect]
     Active Substance: SITAGLIPTIN PHOSPHATE
     Indication: TYPE 2 DIABETES MELLITUS
     Dosage: 100 MG, QD
     Route: 048
     Dates: start: 20070301, end: 201009
  2. JANUVIA [Suspect]
     Active Substance: SITAGLIPTIN PHOSPHATE
     Dosage: 50 MG, UNK
     Route: 048
     Dates: start: 20100111, end: 20100701

REACTIONS (56)
  - Head injury [Unknown]
  - Depression [Unknown]
  - Malignant ascites [Unknown]
  - Hepatic cirrhosis [Unknown]
  - Hyponatraemia [Unknown]
  - Fluid retention [Unknown]
  - Renal failure acute [Recovering/Resolving]
  - Hyperglycaemia [Unknown]
  - Pneumonia [Unknown]
  - Generalised oedema [Unknown]
  - Pleural effusion [Unknown]
  - Haemorrhoids [Unknown]
  - Hypovolaemia [Unknown]
  - Pancreaticoduodenectomy [Unknown]
  - Coagulopathy [Unknown]
  - Dyspnoea exertional [Unknown]
  - Skin ulcer [Unknown]
  - Portal vein thrombosis [Unknown]
  - Vomiting [Unknown]
  - Vaginal discharge [Unknown]
  - Trichomoniasis [Unknown]
  - Atelectasis [Unknown]
  - Diverticulum gastric [Unknown]
  - Arteriosclerosis [Unknown]
  - Appendicectomy [Unknown]
  - Fall [Unknown]
  - Deep vein thrombosis [Unknown]
  - Pulmonary embolism [Unknown]
  - Fluid overload [Unknown]
  - Metastases to peritoneum [Unknown]
  - Metastases to lung [Unknown]
  - Impaired healing [Unknown]
  - Oedema [Unknown]
  - Abdominal hernia [Unknown]
  - Tubulointerstitial nephritis [Unknown]
  - Amylase increased [Unknown]
  - Pulmonary mass [Unknown]
  - Thrombocytopenia [Unknown]
  - Hyperbilirubinaemia [Unknown]
  - Renal tubular necrosis [Unknown]
  - Cardiac failure congestive [Unknown]
  - Coeliac artery compression syndrome [Unknown]
  - Pancreatic leak [Unknown]
  - Cellulitis staphylococcal [Unknown]
  - Oedema peripheral [Unknown]
  - Pancreatitis chronic [Unknown]
  - Chest pain [Unknown]
  - Haemorrhoidal haemorrhage [Unknown]
  - Hepatitis alcoholic [Unknown]
  - Pancreatic carcinoma metastatic [Fatal]
  - Arterial therapeutic procedure [Unknown]
  - Dehydration [Unknown]
  - Explorative laparotomy [Unknown]
  - Shoulder operation [Unknown]
  - Portal hypertension [Unknown]
  - Obstruction [Unknown]

NARRATIVE: CASE EVENT DATE: 20091006
